FAERS Safety Report 7731046-3 (Version None)
Quarter: 2011Q3

REPORT INFORMATION
  Report Type: 
  Country: None (occurrence: None)
  Receive Date: 20110906
  Receipt Date: 20110906
  Transmission Date: 20111222
  Serious: Yes (Life-Threatening, Disabling)
  Sender: FDA-Public Use
  Company Number: None

PATIENT
  Age: 81 Year
  Sex: Female
  Weight: 81.646 kg

DRUGS (1)
  1. BEVACIZUMAB [Suspect]
     Indication: AGE-RELATED MACULAR DEGENERATION
     Dosage: UNKNOWN
     Route: 031
     Dates: start: 20110624, end: 20110624

REACTIONS (3)
  - VISUAL ACUITY REDUCED [None]
  - EYE INFECTION [None]
  - EYE PAIN [None]
